FAERS Safety Report 20229439 (Version 1)
Quarter: 2021Q4

REPORT INFORMATION
  Report Type: Report from Study
  Country: TW (occurrence: TW)
  Receive Date: 20211225
  Receipt Date: 20211225
  Transmission Date: 20220303
  Serious: Yes (Other)
  Sender: FDA-Public Use
  Company Number: TW-NOVARTISPH-NVSC2021TW290177

PATIENT
  Sex: Male

DRUGS (1)
  1. COSENTYX [Suspect]
     Active Substance: SECUKINUMAB
     Indication: Ankylosing spondylitis
     Dosage: 150 MG, PRN, AS NEEDED
     Route: 058
     Dates: start: 20200825

REACTIONS (3)
  - Uveitis [Unknown]
  - Abdominal pain upper [Unknown]
  - Regurgitation [Unknown]
